FAERS Safety Report 24699690 (Version 2)
Quarter: 2025Q3

REPORT INFORMATION
  Report Type: Spontaneous
  Country: CH (occurrence: CH)
  Receive Date: 20241205
  Receipt Date: 20250810
  Transmission Date: 20251021
  Serious: Yes (Hospitalization, Other)
  Sender: ALEXION PHARMACEUTICALS
  Company Number: CH-ASTRAZENECA-202411GLO025887CH

PATIENT
  Age: 50 Year
  Sex: Male
  Weight: 80 kg

DRUGS (25)
  1. QUETIAPINE FUMARATE [Suspect]
     Active Substance: QUETIAPINE FUMARATE
     Dosage: 600 MILLIGRAM, QD
     Route: 065
  2. RIVOTRIL [Suspect]
     Active Substance: CLONAZEPAM
     Dosage: 0.5 MILLIGRAM, TID
     Dates: start: 20220415, end: 202204
  3. BROMAZEPAM [Suspect]
     Active Substance: BROMAZEPAM
  4. OLANZAPINE [Suspect]
     Active Substance: OLANZAPINE
     Indication: Psychotic disorder
  5. OXAZEPAM [Suspect]
     Active Substance: OXAZEPAM
     Indication: Neuropsychological symptoms
  6. OXAZEPAM [Suspect]
     Active Substance: OXAZEPAM
     Indication: Drug intolerance
  7. LORAZEPAM [Suspect]
     Active Substance: LORAZEPAM
     Dates: start: 20210209, end: 20210816
  8. LORAZEPAM [Suspect]
     Active Substance: LORAZEPAM
  9. LORAZEPAM [Suspect]
     Active Substance: LORAZEPAM
  10. LORAZEPAM [Suspect]
     Active Substance: LORAZEPAM
  11. ALPRAZOLAM [Suspect]
     Active Substance: ALPRAZOLAM
     Dosage: 0.5 MILLIGRAM, BID
     Dates: start: 20210816, end: 202108
  12. PRAZEPAM [Suspect]
     Active Substance: PRAZEPAM
     Indication: Drug withdrawal syndrome
  13. VALIUM [Suspect]
     Active Substance: DIAZEPAM
     Indication: Drug withdrawal syndrome
  14. SERTRALINE [Suspect]
     Active Substance: SERTRALINE HYDROCHLORIDE
  15. PAROXETINE [Concomitant]
     Active Substance: PAROXETINE
     Indication: Somnolence
  16. ARIPIPRAZOLE [Concomitant]
     Active Substance: ARIPIPRAZOLE
     Indication: Akathisia
  17. ESCITALOPRAM [Concomitant]
     Active Substance: ESCITALOPRAM OXALATE
  18. PREGABALIN [Concomitant]
     Active Substance: PREGABALIN
  19. LITHIUM [Concomitant]
     Active Substance: LITHIUM
  20. VALPROATE [Concomitant]
     Active Substance: VALPROIC ACID
  21. LEVOMEPROMAZINE [Concomitant]
     Active Substance: LEVOMEPROMAZINE
  22. LAMOTRIGINE [Concomitant]
     Active Substance: LAMOTRIGINE
  23. REBOXETINE [Concomitant]
     Active Substance: REBOXETINE
  24. FLUVOXAMINE [Concomitant]
     Active Substance: FLUVOXAMINE
  25. CLORAZEPATE DIPOTASSIUM [Concomitant]
     Active Substance: CLORAZEPATE DIPOTASSIUM

REACTIONS (3)
  - Drug withdrawal syndrome [Not Recovered/Not Resolved]
  - Drug ineffective [Not Recovered/Not Resolved]
  - Drug intolerance [Not Recovered/Not Resolved]
